FAERS Safety Report 9137475 (Version 1)
Quarter: 2013Q1

REPORT INFORMATION
  Report Type: Spontaneous
  Country: IT (occurrence: IT)
  Receive Date: 20130304
  Receipt Date: 20130304
  Transmission Date: 20140127
  Serious: Yes (Hospitalization)
  Sender: FDA-Public Use
  Company Number: IT-ASTRAZENECA-2013SE13041

PATIENT
  Age: 4189 Week
  Sex: Male

DRUGS (10)
  1. BRILIQUE [Suspect]
     Route: 048
     Dates: start: 20130121, end: 20130130
  2. ASA [Concomitant]
     Route: 048
  3. BISOPROLOL [Concomitant]
     Route: 048
  4. NITROGLYCERIN [Concomitant]
  5. DOXAZOSIN [Concomitant]
     Route: 048
  6. ATORVASTATIN [Concomitant]
  7. PANTOPRAZOLE [Concomitant]
     Route: 048
  8. KCL RETARD [Concomitant]
     Route: 048
  9. LASITONE [Concomitant]
     Dosage: 25 MG + 37 MG 1 DF, UNKNOWN FREQUENCY
     Route: 048
  10. EUTIROX [Concomitant]
     Route: 048

REACTIONS (1)
  - Haematuria [Recovered/Resolved]
